FAERS Safety Report 9674984 (Version 1)
Quarter: 2013Q4

REPORT INFORMATION
  Report Type: Spontaneous
  Country: US (occurrence: None)
  Receive Date: 20131106
  Receipt Date: 20131106
  Transmission Date: 20140711
  Serious: Yes (Hospitalization)
  Sender: FDA-Public Use
  Company Number: None

PATIENT
  Age: 59 Year
  Sex: Female
  Weight: 89.3 kg

DRUGS (2)
  1. OMNIPAQUE [Suspect]
     Indication: CHEST PAIN
     Route: 042
     Dates: start: 20131103
  2. OMNIPAQUE [Suspect]
     Indication: PULMONARY EMBOLISM
     Route: 042
     Dates: start: 20131103

REACTIONS (6)
  - Chest pain [None]
  - Pulmonary embolism [None]
  - Anaphylactic reaction [None]
  - Dysphagia [None]
  - Pharyngeal oedema [None]
  - Rash [None]
